FAERS Safety Report 9669207 (Version 2)
Quarter: 2013Q4

REPORT INFORMATION
  Report Type: Spontaneous
  Country: US (occurrence: US)
  Receive Date: 20131105
  Receipt Date: 20131231
  Transmission Date: 20140711
  Serious: No
  Sender: FDA-Public Use
  Company Number: US-PFIZER INC-2013313093

PATIENT
  Age: 71 Year
  Sex: Female

DRUGS (1)
  1. FLECTOR [Suspect]
     Indication: MUSCULOSKELETAL PAIN
     Dosage: UNK, 2X/DAY
     Dates: start: 201310, end: 201310

REACTIONS (1)
  - Drug ineffective [Unknown]
